FAERS Safety Report 7000503-X (Version None)
Quarter: 2010Q3

REPORT INFORMATION
  Report Type: 
  Country: None (occurrence: None)
  Receive Date: 20100920
  Receipt Date: 20070905
  Transmission Date: 20110219
  Serious: Yes (Other)
  Sender: FDA-Public Use
  Company Number: US-ASTRAZENECA-2006UW21913

PATIENT
  Age: 21252 Day
  Sex: Female
  Weight: 109.3 kg

DRUGS (38)
  1. SEROQUEL [Suspect]
     Indication: DEPRESSION
     Route: 048
     Dates: start: 19990608
  2. SEROQUEL [Suspect]
     Route: 048
     Dates: start: 20000301, end: 20060801
  3. SEROQUEL [Suspect]
     Route: 048
     Dates: start: 20020520
  4. SEROQUEL [Suspect]
     Dosage: 50 MG-150 MG
     Route: 048
     Dates: start: 20031114
  5. SEROQUEL [Suspect]
     Dosage: 100 MG-200 MG
     Route: 048
     Dates: start: 20060414
  6. GEODON [Concomitant]
  7. CLOZAPHEM [Concomitant]
  8. CLONAZEPAM [Concomitant]
     Dosage: 0.5 MG-6 MG
     Route: 048
     Dates: start: 19990608
  9. PROPOXY [Concomitant]
     Dosage: 100-650 AS PRESCRIBED
     Route: 048
     Dates: start: 19990608
  10. CELEXA [Concomitant]
     Dosage: 20 MG-40 MG
     Route: 048
     Dates: start: 19990608
  11. FUROSEMIDE [Concomitant]
     Route: 048
     Dates: start: 20020725
  12. CYCLOBENZAPRINE [Concomitant]
     Route: 048
     Dates: start: 20020501
  13. HUMULIN R [Concomitant]
     Dates: start: 20020522
  14. HYDROCODONE [Concomitant]
     Dosage: 10/650 AS PRESCRIBED
     Dates: start: 20020522
  15. CITALOPRAM HYDROBROMIDE [Concomitant]
     Route: 048
     Dates: start: 20061122
  16. GABAPENTIN [Concomitant]
     Dosage: 300 MG-1600 MG
     Route: 048
     Dates: start: 20060903
  17. HYOSCYAMINE [Concomitant]
     Route: 048
     Dates: start: 20061122
  18. LANTUS [Concomitant]
     Route: 058
     Dates: start: 20040705
  19. CLARITIN [Concomitant]
     Route: 048
     Dates: start: 20050916
  20. CLARITIN [Concomitant]
     Dates: start: 20060903
  21. METFORMIN HCL [Concomitant]
     Dosage: 500 MG-2 GM
     Route: 048
     Dates: start: 19990610
  22. METOPROLOL XL [Concomitant]
     Route: 048
     Dates: start: 20061219
  23. MUCINEX [Concomitant]
     Route: 048
     Dates: start: 20061219
  24. NEXIUM [Concomitant]
     Route: 048
     Dates: start: 20040705
  25. ALDACTONE [Concomitant]
     Route: 048
     Dates: start: 19990610
  26. AMBIEN [Concomitant]
     Route: 048
     Dates: start: 20061122
  27. REGULAR INSULIN [Concomitant]
     Dates: start: 20061122
  28. MECLIZINE [Concomitant]
     Dates: start: 20031114
  29. OXYCODONE HCL [Concomitant]
     Dosage: ONE TABLET AS NEEDED EVERY SIX HOURS
     Route: 048
     Dates: start: 20061122
  30. PERCOCET [Concomitant]
     Dosage: ONE TABLET 7.5/500 AS NEEDED EVERY SIX HOURS
     Dates: start: 20050916
  31. TOPROL-XL [Concomitant]
  32. ZYLOPRIM [Concomitant]
  33. LIPITOR [Concomitant]
     Dates: start: 20050917
  34. ANTIVERT [Concomitant]
     Dates: start: 20050917
  35. ASPIRIN [Concomitant]
     Dates: start: 20040705
  36. GLYBURIDE [Concomitant]
     Dates: start: 19990610
  37. ESTROGEN [Concomitant]
     Dates: start: 19990610
  38. PREVACID [Concomitant]
     Dates: start: 19990610

REACTIONS (4)
  - DIABETES MELLITUS [None]
  - DIABETES MELLITUS INADEQUATE CONTROL [None]
  - POLYNEUROPATHY [None]
  - TYPE 1 DIABETES MELLITUS [None]
